FAERS Safety Report 7548773-3 (Version None)
Quarter: 2011Q2

REPORT INFORMATION
  Report Type: 
  Country: None (occurrence: None)
  Receive Date: 20110608
  Receipt Date: 20110526
  Transmission Date: 20111010
  Serious: Yes (Other)
  Sender: FDA-Public Use
  Company Number: 2010US003564

PATIENT
  Age: 67 Year
  Sex: Male

DRUGS (6)
  1. POSACONAZOLE [Suspect]
     Indication: PRODUCT USED FOR UNKNOWN INDICATION
  2. MYCOPHENOLATE MOFETIL [Suspect]
     Indication: STEM CELL TRANSPLANT
     Dosage: 2000 MG, UID/QD, 1000 MG, UID/QD,
  3. ACYCLOVIR [Suspect]
     Indication: PRODUCT USED FOR UNKNOWN INDICATION
  4. UNSPECIFIED MEDICATION [Suspect]
     Dosage: UNKNOWN
  5. PREDNISONE [Suspect]
     Indication: STEM CELL TRANSPLANT
     Dosage: 80 MG, UID/QD, 10 MG, UID/QD
  6. PROGRAF [Suspect]
     Indication: STEM CELL TRANSPLANT
     Dosage: 1.5 MG, UID/QD, 0.5 MG, UID/QD,

REACTIONS (3)
  - NEUTROPHIL PELGER-HUET ANOMALY PRESENT [None]
  - BONE MARROW FAILURE [None]
  - PANCYTOPENIA [None]
